FAERS Safety Report 24403905 (Version 4)
Quarter: 2025Q4

REPORT INFORMATION
  Report Type: Spontaneous
  Country: EU (occurrence: EU)
  Receive Date: 20241007
  Receipt Date: 20251001
  Transmission Date: 20260118
  Serious: Yes (Other)
  Sender: ELI LILLY AND COMPANY
  Company Number: EU-ELI_LILLY_AND_COMPANY-ES202407002364

PATIENT
  Age: 44 Year
  Sex: Female

DRUGS (12)
  1. ABEMACICLIB [Suspect]
     Active Substance: ABEMACICLIB
     Indication: Product used for unknown indication
     Dosage: 100 MG, UNKNOWN
     Route: 065
  2. ABEMACICLIB [Suspect]
     Active Substance: ABEMACICLIB
     Dosage: UNK UNK, UNKNOWN
     Route: 065
  3. ABEMACICLIB [Suspect]
     Active Substance: ABEMACICLIB
     Dosage: 50 MG, UNKNOWN
     Route: 065
  4. ALPRAZOLAM [Suspect]
     Active Substance: ALPRAZOLAM
     Indication: Anxiety
     Dosage: 0.5, UNK, UNKNOWN
     Route: 065
  5. ALPRAZOLAM [Suspect]
     Active Substance: ALPRAZOLAM
     Indication: Nervousness
  6. ALPRAZOLAM [Suspect]
     Active Substance: ALPRAZOLAM
     Indication: Negative thoughts
  7. LOPERAMIDE HYDROCHLORIDE [Suspect]
     Active Substance: LOPERAMIDE HYDROCHLORIDE
     Indication: Abdominal pain
     Dosage: UNK, UNKNOWN
     Route: 065
  8. EXEMESTANE [Concomitant]
     Active Substance: EXEMESTANE
     Indication: Product used for unknown indication
     Dosage: UNK UNK, UNKNOWN
  9. EXEMESTANE [Concomitant]
     Active Substance: EXEMESTANE
     Indication: Product used for unknown indication
  10. GOSERELIN [Concomitant]
     Active Substance: GOSERELIN
     Indication: Product used for unknown indication
     Dosage: UNK UNK, UNKNOWN
  11. N-ACETYL CYSTEINE BIOCARE [Concomitant]
     Indication: Inflammation
  12. MELATONIN [Concomitant]
     Active Substance: MELATONIN
     Indication: Product used for unknown indication
     Dosage: 1.9 MG, UNKNOWN

REACTIONS (29)
  - Complication associated with device [Unknown]
  - Abdominal pain [Not Recovered/Not Resolved]
  - Abdominal pain upper [Recovering/Resolving]
  - Arthralgia [Not Recovered/Not Resolved]
  - Somnolence [Unknown]
  - Sleep disorder due to general medical condition, insomnia type [Unknown]
  - Mental fatigue [Unknown]
  - Weight increased [Unknown]
  - Negative thoughts [Recovering/Resolving]
  - Anger [Unknown]
  - Hunger [Unknown]
  - Nervousness [Recovering/Resolving]
  - Abdominal distension [Unknown]
  - Joint dislocation [Unknown]
  - Gastrointestinal disorder [Unknown]
  - Pain [Unknown]
  - Oesophagitis [Unknown]
  - Anxiety [Unknown]
  - Inflammation [Unknown]
  - General physical health deterioration [Unknown]
  - Memory impairment [Unknown]
  - Visual impairment [Unknown]
  - Depressed mood [Unknown]
  - Poor quality sleep [Unknown]
  - Apathy [Unknown]
  - Headache [Unknown]
  - Asthenia [Unknown]
  - Fatigue [Not Recovered/Not Resolved]
  - Diarrhoea [Unknown]
